FAERS Safety Report 4956980-9 (Version None)
Quarter: 2006Q1

REPORT INFORMATION
  Report Type: 
  Country: None (occurrence: None)
  Receive Date: 20060127
  Receipt Date: 20041216
  Transmission Date: 20060701
  Serious: Yes (Hospitalization)
  Sender: FDA-Public Use
  Company Number: 04-12-1752

PATIENT
  Age: 32 Year
  Sex: Male

DRUGS (1)
  1. CLOZAPINE [Suspect]
     Dosage: 25-500MG QD, ORAL
     Route: 048
     Dates: start: 20000401, end: 20041101

REACTIONS (1)
  - TREATMENT NONCOMPLIANCE [None]
